FAERS Safety Report 4783665-4 (Version None)
Quarter: 2005Q3

REPORT INFORMATION
  Report Type: 
  Country: None (occurrence: None)
  Receive Date: 20050928
  Receipt Date: 20050913
  Transmission Date: 20060218
  Serious: Yes (Hospitalization)
  Sender: FDA-Public Use
  Company Number: 218025

PATIENT
  Age: 39 Year
  Sex: Female

DRUGS (4)
  1. HERCEPTIN [Suspect]
     Indication: BREAST CANCER
     Dosage: INTRAVENOUS
     Route: 042
     Dates: start: 20041215
  2. FUROSEMIDE [Concomitant]
  3. OXYCODONE HCL [Concomitant]
  4. CEFTRIAXONE (CEFTRIAXONE SODIUM) [Concomitant]

REACTIONS (2)
  - MYALGIA [None]
  - TACHYCARDIA [None]
